FAERS Safety Report 9514315 (Version 2)
Quarter: 2013Q3

REPORT INFORMATION
  Report Type: Spontaneous
  Country: FR (occurrence: FR)
  Receive Date: 20130911
  Receipt Date: 20130911
  Transmission Date: 20140515
  Serious: Yes (Hospitalization)
  Sender: FDA-Public Use
  Company Number: FR-JNJFOC-20130214856

PATIENT
  Age: 14 Year
  Sex: Female

DRUGS (16)
  1. TOPALGIC [Suspect]
     Indication: PRODUCT USED FOR UNKNOWN INDICATION
     Route: 048
     Dates: start: 20130117, end: 20130120
  2. PARACETAMOL [Suspect]
     Route: 048
  3. PARACETAMOL [Suspect]
     Indication: PRODUCT USED FOR UNKNOWN INDICATION
     Route: 048
     Dates: start: 20130108, end: 20130121
  4. AUGMENTIN [Suspect]
     Indication: PRODUCT USED FOR UNKNOWN INDICATION
     Route: 042
     Dates: start: 20130108, end: 20130113
  5. GARDENAL [Suspect]
     Indication: CONVULSION PROPHYLAXIS
     Route: 048
     Dates: start: 20130111, end: 20130121
  6. GARDENAL [Suspect]
     Indication: CONVULSION PROPHYLAXIS
     Route: 042
     Dates: start: 20130108, end: 20130110
  7. MORPHINE [Concomitant]
     Indication: PRODUCT USED FOR UNKNOWN INDICATION
     Route: 042
     Dates: start: 20130109, end: 20130114
  8. ORAMORPH [Concomitant]
     Indication: PRODUCT USED FOR UNKNOWN INDICATION
     Route: 048
     Dates: start: 20130115, end: 20130117
  9. LAROXYL [Concomitant]
     Indication: PRODUCT USED FOR UNKNOWN INDICATION
     Route: 048
  10. LAROXYL [Concomitant]
     Indication: PRODUCT USED FOR UNKNOWN INDICATION
     Route: 048
     Dates: start: 20130113
  11. LOVENOX [Concomitant]
     Indication: PRODUCT USED FOR UNKNOWN INDICATION
     Route: 058
     Dates: start: 20130114
  12. ZOPHREN [Concomitant]
     Indication: PRODUCT USED FOR UNKNOWN INDICATION
     Route: 048
     Dates: start: 201301
  13. DUPHALAC [Concomitant]
     Indication: PRODUCT USED FOR UNKNOWN INDICATION
     Route: 048
     Dates: start: 20130114
  14. AZANTAC [Concomitant]
     Indication: PRODUCT USED FOR UNKNOWN INDICATION
     Route: 065
     Dates: start: 201301
  15. RIVOTRIL [Concomitant]
     Indication: CONVULSION
     Route: 065
     Dates: start: 201301, end: 201301
  16. TETANUS IMMUNE GLOBULIN (HUMAN) [Concomitant]
     Indication: PRODUCT USED FOR UNKNOWN INDICATION
     Dosage: 250 IU/ 2 ML
     Route: 051
     Dates: start: 201301

REACTIONS (2)
  - Cholestatic liver injury [Recovered/Resolved]
  - Rash maculo-papular [Recovered/Resolved]
